FAERS Safety Report 4884409-8 (Version None)
Quarter: 2006Q1

REPORT INFORMATION
  Report Type: 
  Country: None (occurrence: None)
  Receive Date: 20060117
  Receipt Date: 20060106
  Transmission Date: 20060701
  Serious: Yes (Hospitalization, Other)
  Sender: FDA-Public Use
  Company Number: KII-2006-0020615

PATIENT
  Age: 34 Year
  Sex: Female

DRUGS (1)
  1. MORPHINE SULFATE [Suspect]
     Dosage: ORAL
     Route: 048

REACTIONS (8)
  - CYANOSIS [None]
  - DYSPNOEA [None]
  - OVERDOSE [None]
  - PALLOR [None]
  - PUPIL FIXED [None]
  - RESTLESSNESS [None]
  - SINUS TACHYCARDIA [None]
  - UNRESPONSIVE TO VERBAL STIMULI [None]
